FAERS Safety Report 5259676-1 (Version None)
Quarter: 2007Q1

REPORT INFORMATION
  Report Type: 
  Country: None (occurrence: None)
  Receive Date: 20070309
  Receipt Date: 20070226
  Transmission Date: 20070707
  Serious: Yes (Death)
  Sender: FDA-Public Use
  Company Number: HQWYE022107MAR07

PATIENT
  Age: 79 Year
  Sex: Female

DRUGS (2)
  1. TAZOCIN [Suspect]
     Indication: MORGANELLA INFECTION
     Dosage: UNKNOWN
  2. TAZOCIN [Suspect]
     Indication: SEPTIC SHOCK

REACTIONS (2)
  - CONDITION AGGRAVATED [None]
  - SEPTIC SHOCK [None]
